FAERS Safety Report 5320288-2 (Version None)
Quarter: 2007Q2

REPORT INFORMATION
  Report Type: 
  Country: None (occurrence: None)
  Receive Date: 20070503
  Receipt Date: 20070503
  Transmission Date: 20071010
  Serious: Yes (Other)
  Sender: FDA-Public Use
  Company Number: None

PATIENT
  Age: 50 Year
  Sex: Female
  Weight: 60 kg

DRUGS (1)
  1. LASONIL C.M. GEL 2.5% BAYER [Suspect]
     Indication: ARTHRALGIA
     Dosage: ABOUT TWO TEASPOONS ONCE CUTANEOUS
     Route: 003
     Dates: start: 20070421, end: 20070421

REACTIONS (8)
  - BLISTER [None]
  - DEPRESSION [None]
  - OEDEMA PERIPHERAL [None]
  - PAIN OF SKIN [None]
  - PRURITUS [None]
  - RASH [None]
  - SKIN DISCOLOURATION [None]
  - WOUND SECRETION [None]
